FAERS Safety Report 7451112-X (Version None)
Quarter: 2011Q2

REPORT INFORMATION
  Report Type: 
  Country: None (occurrence: None)
  Receive Date: 20110429
  Receipt Date: 20110429
  Transmission Date: 20111010
  Serious: Yes (Hospitalization)
  Sender: FDA-Public Use
  Company Number: None

PATIENT
  Age: 81 Year
  Sex: Female
  Weight: 45 kg

DRUGS (2)
  1. OTC VIT D SUPPLEMENTS [Concomitant]
  2. PLAVIX [Suspect]
     Indication: ATRIAL FIBRILLATION
     Dosage: PO CHRONIC
     Route: 048

REACTIONS (2)
  - HAEMORRHAGIC STROKE [None]
  - CEREBRAL AMYLOID ANGIOPATHY [None]
